FAERS Safety Report 24811003 (Version 1)
Quarter: 2025Q1

REPORT INFORMATION
  Report Type: Spontaneous
  Country: GB (occurrence: GB)
  Receive Date: 20250106
  Receipt Date: 20250106
  Transmission Date: 20250409
  Serious: Yes (Other)
  Sender: GLAXOSMITHKLINE
  Company Number: None

PATIENT

DRUGS (2)
  1. NIRAPARIB [Suspect]
     Active Substance: NIRAPARIB
     Indication: Product used for unknown indication
     Route: 065
  2. EDOXABAN [Concomitant]
     Active Substance: EDOXABAN
     Indication: Thrombosis
     Route: 065

REACTIONS (1)
  - Cornea verticillata [Not Recovered/Not Resolved]
